FAERS Safety Report 9402569 (Version 1)
Quarter: 2013Q3

REPORT INFORMATION
  Report Type: Spontaneous
  Country: CN (occurrence: CN)
  Receive Date: 20130716
  Receipt Date: 20130716
  Transmission Date: 20140515
  Serious: Yes (Life-Threatening, Other)
  Sender: FDA-Public Use
  Company Number: CN-009507513-1307CHN005952

PATIENT
  Age: 35 Year
  Sex: Male
  Weight: 75 kg

DRUGS (1)
  1. TIENAM [Suspect]
     Indication: BACTERIAL INFECTION
     Dosage: UNK, BID
     Route: 041
     Dates: start: 20120824, end: 20120824

REACTIONS (1)
  - Anaphylactic shock [Recovering/Resolving]
